FAERS Safety Report 13418779 (Version 1)
Quarter: 2017Q2

REPORT INFORMATION
  Report Type: Report from Study
  Country: US (occurrence: US)
  Receive Date: 20170406
  Receipt Date: 20170406
  Transmission Date: 20170830
  Serious: Yes (Hospitalization)
  Sender: FDA-Public Use
  Company Number: PHHO2017US005810

PATIENT
  Sex: Male
  Weight: 125 kg

DRUGS (4)
  1. PACLITAXEL. [Suspect]
     Active Substance: PACLITAXEL
     Indication: ANAPLASTIC THYROID CANCER
     Dosage: UNK
     Route: 065
     Dates: start: 20170123, end: 20170130
  2. BLINDED NO TREATMENT RECEIVED [Suspect]
     Active Substance: INVESTIGATIONAL PRODUCT
     Indication: ANAPLASTIC THYROID CANCER
     Dosage: UNK
     Route: 065
     Dates: start: 20170123, end: 20170204
  3. BLINDED PAZOPANIB [Suspect]
     Active Substance: PAZOPANIB
     Indication: ANAPLASTIC THYROID CANCER
     Dosage: UNK
     Route: 065
     Dates: start: 20170123, end: 20170204
  4. BLINDED PACLITAXEL [Suspect]
     Active Substance: PACLITAXEL
     Indication: ANAPLASTIC THYROID CANCER
     Dosage: UNK
     Route: 065
     Dates: start: 20170123, end: 20170204

REACTIONS (3)
  - Acute kidney injury [Recovering/Resolving]
  - Stomatitis [Recovering/Resolving]
  - Hyponatraemia [Recovering/Resolving]

NARRATIVE: CASE EVENT DATE: 20170202
